FAERS Safety Report 6829363-4 (Version None)
Quarter: 2010Q3

REPORT INFORMATION
  Report Type: 
  Country: None (occurrence: None)
  Receive Date: 20100709
  Receipt Date: 20070304
  Transmission Date: 20110219
  Serious: No
  Sender: FDA-Public Use
  Company Number: US-PFIZER INC-2007017279

PATIENT
  Sex: Female
  Weight: 90.72 kg

DRUGS (7)
  1. CHANTIX [Suspect]
     Indication: SMOKING CESSATION THERAPY
  2. RISPERDAL [Concomitant]
     Indication: MENTAL DISORDER
  3. KLONOPIN [Concomitant]
     Indication: MENTAL DISORDER
  4. DEPAKOTE [Concomitant]
     Indication: MENTAL DISORDER
  5. WELLBUTRIN [Concomitant]
     Indication: MENTAL DISORDER
  6. SYNTHROID [Concomitant]
     Indication: THYROID DISORDER
  7. BENADRYL [Concomitant]
     Indication: SLEEP DISORDER
     Dates: start: 20050101

REACTIONS (1)
  - DIZZINESS [None]
